FAERS Safety Report 10695699 (Version 1)
Quarter: 2015Q1

REPORT INFORMATION
  Report Type: Spontaneous
  Country: US (occurrence: None)
  Receive Date: 20150106
  Receipt Date: 20150106
  Transmission Date: 20150721
  Serious: Yes (Hospitalization)
  Sender: FDA-Public Use
  Company Number: None

PATIENT
  Age: 66 Year
  Sex: Male
  Weight: 108.7 kg

DRUGS (2)
  1. ISOSORBIDE DINITRATE. [Suspect]
     Active Substance: ISOSORBIDE DINITRATE
     Indication: CARDIAC FAILURE CONGESTIVE
     Route: 048
     Dates: start: 20141004, end: 20141014
  2. HYDRALAZINE [Suspect]
     Active Substance: HYDRALAZINE HYDROCHLORIDE
     Indication: CARDIAC FAILURE CONGESTIVE
     Route: 048
     Dates: start: 20141004, end: 20141014

REACTIONS (6)
  - Eosinophil count increased [None]
  - Neutrophil count increased [None]
  - Drug reaction with eosinophilia and systemic symptoms [None]
  - Pruritus [None]
  - Rash morbilliform [None]
  - Blood creatinine increased [None]

NARRATIVE: CASE EVENT DATE: 20141014
